FAERS Safety Report 8775263 (Version 2)
Quarter: 2012Q4

REPORT INFORMATION
  Report Type: 
  Country: US (occurrence: US)
  Receive Date: 20120910
  Receipt Date: 20121001
  Transmission Date: 20130627
  Serious: No
  Sender: FDA-Public Use
  Company Number: US-TEVA-357683USA

PATIENT
  Sex: Female
  Weight: 81.72 kg

DRUGS (11)
  1. PROAIR HFA [Suspect]
     Indication: PULMONARY OEDEMA
     Route: 055
  2. LYRICA [Concomitant]
     Indication: PARAESTHESIA
     Dosage: 225 Milligram Daily;
  3. NOVOLOG R [Concomitant]
     Indication: DIABETES MELLITUS
  4. CADUET [Concomitant]
     Indication: BLOOD PRESSURE MANAGEMENT
     Dosage: 5/40 mg
  5. CADUET [Concomitant]
     Indication: CARDIAC DISORDER
  6. ASPIRIN [Concomitant]
     Indication: ANTICOAGULANT THERAPY
  7. LASIX [Concomitant]
     Indication: FLUID RETENTION
     Dosage: 20 Milligram Daily;
  8. POTASSIUM [Concomitant]
     Indication: SUPPLEMENTATION THERAPY
  9. SYMBICORT [Concomitant]
     Indication: PULMONARY OEDEMA
     Dosage: 4.5mg two times a day
  10. ZEMPLAR [Concomitant]
     Dosage: 4 Microgram Daily;
  11. PREDNISONE [Concomitant]
     Indication: PULMONARY OEDEMA
     Dosage: 5 Milliequivalents Daily;

REACTIONS (2)
  - Pruritus [Unknown]
  - Off label use [Unknown]
